FAERS Safety Report 14579732 (Version 1)
Quarter: 2018Q1

REPORT INFORMATION
  Report Type: Spontaneous
  Country: US (occurrence: US)
  Receive Date: 20180227
  Receipt Date: 20180227
  Transmission Date: 20180509
  Serious: Yes (Other)
  Sender: FDA-Public Use
  Company Number: US-BAXTER-2018BAX005762

PATIENT
  Age: 41 Year
  Sex: Male

DRUGS (22)
  1. IFEX [Suspect]
     Active Substance: IFOSFAMIDE
     Indication: PLEURAL EFFUSION
  2. ETOPOSIDE. [Concomitant]
     Active Substance: ETOPOSIDE
     Indication: PERICARDIAL EFFUSION MALIGNANT
  3. ETOPOSIDE. [Concomitant]
     Active Substance: ETOPOSIDE
     Indication: MALIGNANT NEOPLASM PROGRESSION
  4. CYTARABINE. [Concomitant]
     Active Substance: CYTARABINE
     Indication: PERICARDIAL EFFUSION MALIGNANT
  5. IFEX [Suspect]
     Active Substance: IFOSFAMIDE
     Indication: METASTASES TO LIVER
  6. IFEX [Suspect]
     Active Substance: IFOSFAMIDE
     Indication: MALIGNANT NEOPLASM PROGRESSION
  7. IFEX [Suspect]
     Active Substance: IFOSFAMIDE
     Indication: LYMPHOMA TRANSFORMATION
  8. ETOPOSIDE. [Concomitant]
     Active Substance: ETOPOSIDE
     Indication: METASTASES TO LIVER
  9. CYTARABINE. [Concomitant]
     Active Substance: CYTARABINE
     Indication: MALIGNANT NEOPLASM PROGRESSION
  10. VANCOMYCIN [Concomitant]
     Active Substance: VANCOMYCIN
     Indication: PYREXIA
     Dosage: DOSED BY SERUM LEVELS
     Route: 065
  11. ETOPOSIDE. [Concomitant]
     Active Substance: ETOPOSIDE
     Indication: LYMPHOMA TRANSFORMATION
  12. ETOPOSIDE. [Concomitant]
     Active Substance: ETOPOSIDE
     Indication: PLEURAL EFFUSION
  13. CYTARABINE. [Concomitant]
     Active Substance: CYTARABINE
     Indication: B-CELL LYMPHOMA
     Route: 065
  14. CYTARABINE. [Concomitant]
     Active Substance: CYTARABINE
     Indication: METASTASES TO LIVER
  15. IFEX [Suspect]
     Active Substance: IFOSFAMIDE
     Indication: B-CELL LYMPHOMA
  16. IFEX [Suspect]
     Active Substance: IFOSFAMIDE
     Indication: PERICARDIAL EFFUSION MALIGNANT
     Route: 065
  17. ETOPOSIDE. [Concomitant]
     Active Substance: ETOPOSIDE
     Indication: B-CELL LYMPHOMA
     Dosage: 60 MG/M2
     Route: 065
  18. ACETAMINOPHEN. [Concomitant]
     Active Substance: ACETAMINOPHEN
     Indication: PYREXIA
     Route: 065
  19. CEFTAZIDIME. [Concomitant]
     Active Substance: CEFTAZIDIME
     Indication: PYREXIA
     Route: 042
  20. CYTARABINE. [Concomitant]
     Active Substance: CYTARABINE
     Indication: LYMPHOMA TRANSFORMATION
  21. MESNA. [Concomitant]
     Active Substance: MESNA
     Indication: PRODUCT USED FOR UNKNOWN INDICATION
     Route: 065
  22. CYTARABINE. [Concomitant]
     Active Substance: CYTARABINE
     Indication: PLEURAL EFFUSION

REACTIONS (2)
  - Renal tubular acidosis [Not Recovered/Not Resolved]
  - Acute kidney injury [Not Recovered/Not Resolved]
